FAERS Safety Report 15617159 (Version 1)
Quarter: 2018Q4

REPORT INFORMATION
  Report Type: Spontaneous
  Country: US (occurrence: US)
  Receive Date: 20181112
  Receipt Date: 20181112
  Transmission Date: 20190205
  Serious: Yes (Death, Hospitalization, Disabling, Other)
  Sender: FDA-Public Use
  Company Number: None

PATIENT
  Age: 63 Year
  Sex: Female
  Weight: 54 kg

DRUGS (3)
  1. OMNISCAN [Suspect]
     Active Substance: GADODIAMIDE
     Indication: NUCLEAR MAGNETIC RESONANCE IMAGING
     Route: 008
     Dates: start: 20050321, end: 20070109
  2. OMNISCAN [Suspect]
     Active Substance: GADODIAMIDE
     Indication: COMPUTERISED TOMOGRAM
     Route: 008
     Dates: start: 20050321, end: 20070109
  3. MULTIHANCE [Suspect]
     Active Substance: GADOBENATE DIMEGLUMINE

REACTIONS (37)
  - Dialysis [None]
  - Bone loss [None]
  - Thrombocytopenia [None]
  - Paraesthesia [None]
  - Hypoaesthesia [None]
  - Cholecystectomy [None]
  - Bacteraemia [None]
  - Cervical spinal stenosis [None]
  - Vision blurred [None]
  - Pneumonia [None]
  - Respiratory failure [None]
  - Melaena [None]
  - Headache [None]
  - Gastrointestinal wall thickening [None]
  - Mental disorder [None]
  - Skin disorder [None]
  - Nephrogenic systemic fibrosis [None]
  - Vomiting [None]
  - Emotional distress [None]
  - Fibrosis [None]
  - Burning sensation [None]
  - Feeling abnormal [None]
  - Anaemia [None]
  - Cardiac failure [None]
  - Bone pain [None]
  - Loss of personal independence in daily activities [None]
  - Poisoning [None]
  - Intervertebral disc degeneration [None]
  - Vocal cord paralysis [None]
  - Multiple organ dysfunction syndrome [None]
  - Pancytopenia [None]
  - Hyperkeratosis [None]
  - Pneumonia aspiration [None]
  - Overdose [None]
  - Diarrhoea [None]
  - Hypersensitivity [None]
  - Pancreatitis [None]

NARRATIVE: CASE EVENT DATE: 20050321
